FAERS Safety Report 21226583 (Version 1)
Quarter: 2022Q3

REPORT INFORMATION
  Report Type: Spontaneous
  Country: ES (occurrence: ES)
  Receive Date: 20220818
  Receipt Date: 20220818
  Transmission Date: 20221027
  Serious: Yes (Life-Threatening, Hospitalization, Other)
  Sender: FDA-Public Use
  Company Number: None

PATIENT
  Age: 67 Year
  Sex: Female

DRUGS (9)
  1. ABRAXANE [Suspect]
     Active Substance: PACLITAXEL
     Indication: Ovarian cancer
     Route: 065
     Dates: start: 20210426, end: 20210621
  2. NIRAPARIB [Suspect]
     Active Substance: NIRAPARIB
     Indication: Ovarian cancer
     Route: 048
     Dates: start: 20211125, end: 20211216
  3. NIRAPARIB [Suspect]
     Active Substance: NIRAPARIB
     Route: 048
     Dates: start: 20210908, end: 20211103
  4. NIRAPARIB [Suspect]
     Active Substance: NIRAPARIB
     Route: 048
     Dates: start: 20210803, end: 20210825
  5. CARBOPLATIN [Suspect]
     Active Substance: CARBOPLATIN
     Indication: Ovarian cancer
     Route: 065
     Dates: start: 20210426, end: 20210621
  6. EUTIROX 50 microgramos COMPRIMIDOS [Concomitant]
     Indication: Product used for unknown indication
     Route: 048
     Dates: start: 20140711
  7. TARDYFERON 80 mg COMPRIMIDOS RECUBIERTOS [Concomitant]
     Indication: Product used for unknown indication
     Route: 065
     Dates: start: 20220223
  8. BLOPRESS 16 mg COMPRIMIDOS [Concomitant]
     Indication: Product used for unknown indication
     Route: 065
     Dates: start: 20110927
  9. SIMVASTATIN [Concomitant]
     Active Substance: SIMVASTATIN
     Indication: Product used for unknown indication
     Route: 065
     Dates: start: 20110728

REACTIONS (2)
  - Acute myeloid leukaemia [Not Recovered/Not Resolved]
  - Thrombocytopenia [Not Recovered/Not Resolved]

NARRATIVE: CASE EVENT DATE: 20210825
